FAERS Safety Report 6690682-6 (Version None)
Quarter: 2010Q2

REPORT INFORMATION
  Report Type: 
  Country: None (occurrence: None)
  Receive Date: 20100421
  Receipt Date: 20100125
  Transmission Date: 20101027
  Serious: No
  Sender: FDA-Public Use
  Company Number: US-BRISTOL-MYERS SQUIBB COMPANY-14929087

PATIENT
  Age: 57 Year
  Sex: Male
  Weight: 45 kg

DRUGS (18)
  1. HYDREA [Suspect]
     Indication: LARYNGEAL CANCER
     Dosage: ROUTE :G TUBE
     Route: 061
     Dates: start: 20091209
  2. HYDREA [Suspect]
     Indication: POLYCYTHAEMIA VERA
     Dosage: ROUTE :G TUBE
     Route: 061
     Dates: start: 20091209
  3. MORPHINE [Concomitant]
  4. HYDROMORPHONE [Concomitant]
  5. FENTANYL [Concomitant]
  6. FOLIC ACID [Concomitant]
  7. GABAPENTIN [Concomitant]
  8. METOPROLOL TARTRATE [Concomitant]
  9. MOMETASONE FUROATE [Concomitant]
  10. MULTI-VITAMIN [Concomitant]
  11. THIAMINE [Concomitant]
  12. NICOTINE [Concomitant]
  13. DOCUSATE [Concomitant]
  14. MIRTAZAPINE [Concomitant]
  15. SOLU-MEDROL [Concomitant]
  16. ONDANSETRON [Concomitant]
  17. ASPIRIN [Concomitant]
  18. OMEPRAZOLE [Concomitant]

REACTIONS (1)
  - GASTROOESOPHAGEAL REFLUX DISEASE [None]
